FAERS Safety Report 14424146 (Version 3)
Quarter: 2018Q1

REPORT INFORMATION
  Report Type: Spontaneous
  Country: CN (occurrence: CN)
  Receive Date: 20180123
  Receipt Date: 20180309
  Transmission Date: 20180509
  Serious: Yes (Other)
  Sender: FDA-Public Use
  Company Number: PHHY2018CN009217

PATIENT
  Age: 87 Year
  Sex: Female

DRUGS (3)
  1. TIMOLOL. [Concomitant]
     Active Substance: TIMOLOL
     Indication: PRODUCT USED FOR UNKNOWN INDICATION
     Dosage: UNK, QD
     Route: 065
  2. TRAVATAN [Suspect]
     Active Substance: TRAVOPROST
     Indication: GLAUCOMA
     Dosage: UNK, QHS
     Route: 047
     Dates: start: 2006
  3. TRAVATAN [Suspect]
     Active Substance: TRAVOPROST
     Dosage: QHS
     Route: 047
     Dates: start: 20180104

REACTIONS (3)
  - Conjunctival hyperaemia [Recovered/Resolved]
  - Dark circles under eyes [Unknown]
  - Trachoma [Recovered/Resolved]
